FAERS Safety Report 8307655-X (Version None)
Quarter: 2012Q2

REPORT INFORMATION
  Report Type: 
  Country: None (occurrence: None)
  Receive Date: 20120424
  Receipt Date: 20120416
  Transmission Date: 20120825
  Serious: Yes (Hospitalization)
  Sender: FDA-Public Use
  Company Number: IE-MEDIMMUNE-MEDI-0014595

PATIENT
  Sex: Male
  Weight: 8 kg

DRUGS (3)
  1. SILDENAFIL [Concomitant]
  2. SYNAGIS [Suspect]
     Route: 030
     Dates: start: 20111021, end: 20111021
  3. BOSANTIN [Concomitant]

REACTIONS (2)
  - PNEUMONIA [None]
  - RESPIRATORY SYNCYTIAL VIRUS BRONCHIOLITIS [None]
